FAERS Safety Report 10876536 (Version 1)
Quarter: 2015Q1

REPORT INFORMATION
  Report Type: Spontaneous
  Country: US (occurrence: US)
  Receive Date: 20150301
  Receipt Date: 20150301
  Transmission Date: 20150721
  Serious: No
  Sender: FDA-Public Use
  Company Number: US-TEVA-542438USA

PATIENT
  Sex: Female

DRUGS (1)
  1. CLARAVIS [Suspect]
     Active Substance: ISOTRETINOIN
     Indication: ACNE
     Dosage: 60 MILLIGRAM DAILY;
     Dates: start: 20141015, end: 20141204

REACTIONS (5)
  - Arthralgia [Unknown]
  - Mood swings [Unknown]
  - Depression [Unknown]
  - Back pain [Unknown]
  - Alopecia [Unknown]
